FAERS Safety Report 7968793 (Version 2)
Quarter: 2012Q4

REPORT INFORMATION
  Report Type: 
  Country: IT (occurrence: IT)
  Receive Date: 20110601
  Receipt Date: 20120917
  Transmission Date: 20130627
  Serious: Yes (Other)
  Sender: FDA-Public Use
  Company Number: IT-BRISTOL-MYERS SQUIBB COMPANY-15774714

PATIENT
  Age: 80 Year
  Sex: Male

DRUGS (5)
  1. COUMADIN TABS 5 MG [Suspect]
     Indication: PULMONARY EMBOLISM
     Dosage: Interrupted:20Feb11
     Dates: start: 20060515
  2. TORVAST [Concomitant]
     Dosage: Formulation:Torvast 20 mg tabs,
     Route: 048
     Dates: start: 20100514, end: 20110220
  3. KARVEZIDE [Concomitant]
     Dosage: 1 df:1 unit
Formulation:Karvezide 300 mg/12.5 mg
     Route: 048
     Dates: start: 20060515, end: 20110220
  4. LANTUS [Concomitant]
     Dosage: 1 df:100 IU/ml
Injectable solution
     Route: 058
     Dates: start: 20110101, end: 20110220
  5. HUMALOG [Concomitant]
     Dosage: 1 df:100 U/mL injectable solution
     Route: 058
     Dates: start: 20100901, end: 20110220

REACTIONS (2)
  - Renal failure [Unknown]
  - International normalised ratio increased [Recovered/Resolved]
